FAERS Safety Report 8783092 (Version 1)
Quarter: 2012Q4

REPORT INFORMATION
  Report Type: Report from Study
  Country: FR (occurrence: FR)
  Receive Date: 20120913
  Receipt Date: 20120913
  Transmission Date: 20130627
  Serious: Yes (Hospitalization, Other)
  Sender: FDA-Public Use
  Company Number: FR-JNJFOC-20120903744

PATIENT
  Age: 64 Year
  Sex: Male

DRUGS (5)
  1. YONDELIS [Suspect]
     Indication: LEIOMYOSARCOMA
     Route: 042
     Dates: start: 20120829, end: 20120829
  2. DOXORUBICIN [Suspect]
     Indication: LEIOMYOSARCOMA
     Route: 042
     Dates: start: 20120829, end: 20120829
  3. AMLOR [Concomitant]
  4. OGAST [Concomitant]
  5. LEVOTHYROX [Concomitant]

REACTIONS (1)
  - Atrial fibrillation [Not Recovered/Not Resolved]
